FAERS Safety Report 24315637 (Version 2)
Quarter: 2024Q4

REPORT INFORMATION
  Report Type: Spontaneous
  Country: JM (occurrence: JM)
  Receive Date: 20240913
  Receipt Date: 20241004
  Transmission Date: 20250115
  Serious: Yes (Death, Other)
  Sender: NOVARTIS
  Company Number: JM-002147023-NVSC2024JM183036

PATIENT
  Age: 37 Year
  Sex: Male

DRUGS (8)
  1. TASIGNA [Suspect]
     Active Substance: NILOTINIB
     Indication: Chronic myeloid leukaemia
     Dosage: 400 MG, QD
     Route: 048
     Dates: start: 20240614, end: 20240704
  2. TASIGNA [Suspect]
     Active Substance: NILOTINIB
     Dosage: 200 MG (NASOGASTRIC IN FINAL ILLNESS)
     Route: 065
     Dates: start: 20240711
  3. RISPERIDONE [Concomitant]
     Active Substance: RISPERIDONE
     Indication: Product used for unknown indication
     Dosage: 40 MG, QD
     Route: 048
     Dates: start: 20240709
  4. DPH [Concomitant]
     Indication: Product used for unknown indication
     Dosage: 2 MG, BID
     Route: 048
     Dates: start: 20240709
  5. ZOLPIDEM TARTRATE [Concomitant]
     Active Substance: ZOLPIDEM TARTRATE
     Indication: Product used for unknown indication
     Dosage: UNK
     Route: 048
     Dates: start: 20240709
  6. PANADOL [Concomitant]
     Active Substance: ACETAMINOPHEN
     Indication: Product used for unknown indication
     Dosage: 1 G, PRN
     Route: 042
     Dates: start: 20240709
  7. DEXAMETHASONE [Concomitant]
     Active Substance: DEXAMETHASONE
     Indication: Product used for unknown indication
     Dosage: 2 MG, QID
     Route: 042
     Dates: start: 20240709
  8. ZOSYN [Concomitant]
     Active Substance: PIPERACILLIN SODIUM\TAZOBACTAM SODIUM
     Indication: Product used for unknown indication
     Dosage: 4.5 G, QID
     Route: 065
     Dates: start: 20240709

REACTIONS (2)
  - Tumour lysis syndrome [Fatal]
  - Chronic myeloid leukaemia transformation [Fatal]

NARRATIVE: CASE EVENT DATE: 20240712
